FAERS Safety Report 9145547 (Version 1)
Quarter: 2013Q1

REPORT INFORMATION
  Report Type: Spontaneous
  Country: US (occurrence: US)
  Receive Date: 20130307
  Receipt Date: 20130307
  Transmission Date: 20140127
  Serious: No
  Sender: FDA-Public Use
  Company Number: US-PFIZER INC-2013077796

PATIENT
  Age: 66 Year
  Sex: Male
  Weight: 68.03 kg

DRUGS (7)
  1. LYRICA [Suspect]
     Indication: ARTHRALGIA
     Dosage: 25 MG, 1X/DAY
     Dates: start: 201302
  2. LYRICA [Suspect]
     Indication: NECK PAIN
  3. LYRICA [Suspect]
     Indication: BACK PAIN
  4. PLAVIX [Concomitant]
     Dosage: UNK
  5. VYTORIN [Concomitant]
     Indication: BLOOD CHOLESTEROL ABNORMAL
     Dosage: UNK
  6. ATENOLOL [Concomitant]
     Dosage: UNK
  7. ASPIRIN [Concomitant]
     Dosage: UNK

REACTIONS (2)
  - Pyrexia [Not Recovered/Not Resolved]
  - Asthenia [Not Recovered/Not Resolved]
